FAERS Safety Report 8766172 (Version 2)
Quarter: 2013Q4

REPORT INFORMATION
  Report Type: Report from Study
  Country: JP (occurrence: JP)
  Receive Date: 20120904
  Receipt Date: 20131106
  Transmission Date: 20140711
  Serious: Yes (Hospitalization)
  Sender: FDA-Public Use
  Company Number: JP-009507513-1208JPN012302

PATIENT
  Age: 66 Year
  Sex: Male
  Weight: 73 kg

DRUGS (17)
  1. PEGINTRON [Suspect]
     Indication: HEPATITIS C
     Dosage: 100 MICROGRAM, QW
     Route: 058
     Dates: start: 20120309
  2. PEGINTRON [Suspect]
     Dosage: 1.5MCG/KG/WEEK
     Route: 058
  3. REBETOL [Suspect]
     Indication: HEPATITIS C
     Dosage: 800 MG, QD
     Route: 048
     Dates: start: 20120309, end: 20120504
  4. REBETOL [Suspect]
     Dosage: 800 MG, QD
     Route: 048
     Dates: start: 20120309, end: 20120309
  5. REBETOL [Suspect]
     Dosage: 200 MG, QD
     Route: 048
     Dates: start: 20120531, end: 20120605
  6. TELAVIC [Suspect]
     Indication: HEPATITIS C
     Dosage: 1500 MG, QD
     Route: 048
     Dates: start: 20120309, end: 20120518
  7. TELAVIC [Suspect]
     Dosage: 1000 MG, QD
     Route: 048
     Dates: start: 20120518, end: 20120525
  8. ZYLORIC [Concomitant]
     Indication: HEPATITIS C
     Dosage: 300 MG, QD
     Route: 048
  9. NERIPROCT [Concomitant]
     Indication: HEPATITIS C
     Dosage: UNK
     Route: 061
     Dates: start: 20120321
  10. LOXONIN [Concomitant]
     Indication: PYREXIA
     Dosage: 60 MG/DAY, AS NEEDED
     Route: 048
  11. RHYTHMY [Concomitant]
     Indication: INSOMNIA
     Dosage: 1 MG/DAY, AS NEEDED
     Route: 048
  12. ALOSENN (SENNA) [Concomitant]
     Indication: CONSTIPATION
     Dosage: 0.5 G/DAY, AS NEEDED
     Route: 048
  13. [THERAPY UNSPECIFIED] [Concomitant]
     Indication: INJECTION SITE ERYTHEMA
     Dosage: UNK, PRN
     Route: 061
  14. [THERAPY UNSPECIFIED] [Concomitant]
     Indication: HEPATITIS C
     Dosage: 100 MG, QD
     Route: 048
  15. MYSLEE [Concomitant]
     Route: 048
  16. [THERAPY UNSPECIFIED] [Concomitant]
     Route: 048
  17. RESLIN TABLETS 25 [Concomitant]
     Route: 048

REACTIONS (1)
  - Anaemia [Not Recovered/Not Resolved]
